FAERS Safety Report 18260470 (Version 1)
Quarter: 2020Q3

REPORT INFORMATION
  Report Type: Spontaneous
  Country: FR (occurrence: FR)
  Receive Date: 20200914
  Receipt Date: 20200914
  Transmission Date: 20201103
  Serious: Yes (Hospitalization)
  Sender: FDA-Public Use
  Company Number: FR-TEVA-2020-FR-1825693

PATIENT
  Age: 79 Year
  Sex: Female
  Weight: 64 kg

DRUGS (13)
  1. ASPIRINE PROTECT [Concomitant]
     Active Substance: ASPIRIN
     Dosage: 1 TABLET MIDI
     Route: 048
  2. FUROSEMIDE. [Concomitant]
     Active Substance: FUROSEMIDE
     Dosage: 20 MILLIGRAM DAILY;  THE MORNING
     Route: 048
  3. ALLOPURINOL. [Concomitant]
     Active Substance: ALLOPURINOL
     Dosage: 100 MILLIGRAM DAILY; IN THE EVENING
     Route: 048
  4. MELATONINE [Concomitant]
     Active Substance: MELATONIN
     Dosage: 2 DOSAGE FORMS DAILY;   IN THE EVENING
  5. OMEPRAZOLE. [Concomitant]
     Active Substance: OMEPRAZOLE
     Dosage: 20 MILLIGRAM DAILY;  IN THE EVENING
     Route: 048
  6. DIFFU K [Concomitant]
     Active Substance: POTASSIUM CHLORIDE
     Dosage: 1 TABLET IN THE MORNING AND 1 TABLET IN THE EVENING (UNIT DOSE: 2DF)
     Route: 048
  7. ABASAGLAR 100 UNITES/ML, SOLUTION INJECTABLE EN CARTOUCHE [Concomitant]
     Dosage: 38 IU (INTERNATIONAL UNIT) DAILY;  EVENING
     Route: 058
  8. AMLOR 5 MG, GELULE [Concomitant]
     Active Substance: AMLODIPINE BESYLATE
     Dosage: 5 MILLIGRAM DAILY;   IN THE MORNING
     Route: 048
  9. QUETIAPINE. [Suspect]
     Active Substance: QUETIAPINE
     Indication: BIPOLAR DISORDER
     Dosage: 300 MG
     Route: 048
  10. OLANZAPINE. [Suspect]
     Active Substance: OLANZAPINE
     Indication: BIPOLAR DISORDER
     Dosage: 5 MG
     Route: 048
  11. ALPRAZOLAM. [Concomitant]
     Active Substance: ALPRAZOLAM
     Dosage: 8 MILLIGRAM DAILY; 1 TABLET IN THE MORNING, 1 AT NOON, 1 AT 6 P.M. AND 1 AT BED
     Route: 048
  12. NOVONORM 2 MG, COMPRIME [Concomitant]
     Active Substance: REPAGLINIDE
     Dosage: 3 DOSAGE FORMS
     Route: 048
  13. MIANSERINE (CHLORHYDRATE DE) [Concomitant]
     Active Substance: MIANSERIN HYDROCHLORIDE
     Dosage: 2.5 TABLET IN THE EVENING, UNIT DOSE: 60 MG
     Route: 048

REACTIONS (1)
  - Pulmonary embolism [Recovering/Resolving]

NARRATIVE: CASE EVENT DATE: 20200806
